FAERS Safety Report 7817345-5 (Version None)
Quarter: 2011Q4

REPORT INFORMATION
  Report Type: 
  Country: None (occurrence: None)
  Receive Date: 20111017
  Receipt Date: 20111004
  Transmission Date: 20120403
  Serious: Yes (Hospitalization)
  Sender: FDA-Public Use
  Company Number: US-ELI_LILLY_AND_COMPANY-US201105003880

PATIENT
  Sex: Female
  Weight: 117 kg

DRUGS (30)
  1. FORTEO [Suspect]
     Indication: OSTEOPOROSIS
     Dosage: 20 UG, QD
     Route: 065
     Dates: start: 20110315
  2. PANTOPRAZOLE SODIUM SESQUIHYDRATE [Concomitant]
  3. MIRAP [Concomitant]
  4. CICLOPIROX [Concomitant]
  5. OXYCODONE HCL [Concomitant]
  6. CEFIXIME [Concomitant]
  7. FENTANYL [Concomitant]
  8. FOLIC ACID [Concomitant]
  9. NOVOLOG [Concomitant]
  10. AZITHROMYCIN [Concomitant]
  11. SOMA [Concomitant]
  12. DILTIAZEM HCL [Concomitant]
  13. CYMBALTA [Concomitant]
     Route: 065
  14. AMITRIPTILINA [Concomitant]
  15. HUMIRA [Concomitant]
  16. LISINOPRIL [Concomitant]
  17. SALAGEN [Concomitant]
  18. PHENERGAN HCL [Concomitant]
  19. METHOTREXATE [Concomitant]
  20. FORTEO [Suspect]
     Dosage: 20 UG, QD
     Route: 065
  21. VITAMIN D [Concomitant]
  22. SODIUM CHLORIDE INJ [Concomitant]
  23. ALBUTEROL [Concomitant]
  24. LIPITOR [Concomitant]
  25. LASIX [Concomitant]
  26. POTASSIUM [Concomitant]
  27. PREDNISONE [Concomitant]
  28. SUCRALFATE [Concomitant]
  29. HUMALOG [Concomitant]
     Indication: DIABETES MELLITUS
     Route: 065
  30. METOPROLOL SUCCINATE [Concomitant]

REACTIONS (5)
  - BLOOD SODIUM ABNORMAL [None]
  - OEDEMA PERIPHERAL [None]
  - MALAISE [None]
  - PNEUMONIA [None]
  - WEIGHT INCREASED [None]
